FAERS Safety Report 11202485 (Version 1)
Quarter: 2015Q2

REPORT INFORMATION
  Report Type: Spontaneous
  Country: US (occurrence: None)
  Receive Date: 20150617
  Receipt Date: 20150617
  Transmission Date: 20150821
  Serious: Yes (Hospitalization)
  Sender: FDA-Public Use
  Company Number: None

PATIENT
  Age: 82 Year
  Sex: Male
  Weight: 81.9 kg

DRUGS (2)
  1. AMIODARONE [Suspect]
     Active Substance: AMIODARONE
     Indication: ATRIAL FIBRILLATION
     Route: 048
     Dates: start: 20110404, end: 20110921
  2. AMIODARONE [Suspect]
     Active Substance: AMIODARONE
     Indication: MITRAL VALVE INCOMPETENCE
     Route: 048
     Dates: start: 20110404, end: 20110921

REACTIONS (2)
  - Oxygen saturation decreased [None]
  - Pulmonary toxicity [None]

NARRATIVE: CASE EVENT DATE: 20110923
